FAERS Safety Report 9468479 (Version 1)
Quarter: 2013Q3

REPORT INFORMATION
  Report Type: Spontaneous
  Country: US (occurrence: US)
  Receive Date: 20130821
  Receipt Date: 20130821
  Transmission Date: 20140515
  Serious: No
  Sender: FDA-Public Use
  Company Number: US-PFIZER INC-2013238065

PATIENT
  Sex: 0

DRUGS (1)
  1. UNASYN [Suspect]
     Dosage: 3 G, EVERY 4 HRS

REACTIONS (2)
  - Overdose [Unknown]
  - Tooth discolouration [Unknown]
